FAERS Safety Report 11821361 (Version 1)
Quarter: 2015Q4

REPORT INFORMATION
  Report Type: Spontaneous
  Country: US (occurrence: US)
  Receive Date: 20151210
  Receipt Date: 20151210
  Transmission Date: 20160305
  Serious: No
  Sender: FDA-Public Use
  Company Number: US-JNJFOC-20150819605

PATIENT
  Age: 48 Year
  Sex: Male

DRUGS (4)
  1. CIALIS [Concomitant]
     Active Substance: TADALAFIL
  2. VIAGRA [Concomitant]
     Active Substance: SILDENAFIL CITRATE
  3. IMBRUVICA [Suspect]
     Active Substance: IBRUTINIB
     Indication: LYMPHOMA
     Route: 048
     Dates: start: 20150212
  4. OXYCODONE [Concomitant]
     Active Substance: OXYCODONE

REACTIONS (4)
  - Off label use [Unknown]
  - Sinusitis [Unknown]
  - Dry mouth [Unknown]
  - Productive cough [Unknown]

NARRATIVE: CASE EVENT DATE: 201507
